FAERS Safety Report 4290277-8 (Version None)
Quarter: 2004Q1

REPORT INFORMATION
  Report Type: 
  Country: None (occurrence: None)
  Receive Date: 20040209
  Receipt Date: 20040128
  Transmission Date: 20041129
  Serious: Yes (Hospitalization)
  Sender: FDA-Public Use
  Company Number: CIP03002595

PATIENT
  Age: 75 Year
  Sex: Female

DRUGS (4)
  1. ACTONEL [Suspect]
     Indication: OSTEOPOROSIS
     Dosage: 35 MG ONCE WEEKLY, ORAL
     Route: 048
     Dates: start: 20030301, end: 20030601
  2. ACTONEL [Suspect]
     Indication: OSTEOPOROSIS
     Dosage: 5 MG DAILY, ORAL
     Route: 048
     Dates: start: 20011001, end: 20030301
  3. SYNTHROID [Concomitant]
  4. CALCIUM CARBONATE [Concomitant]

REACTIONS (5)
  - ABDOMINAL PAIN UPPER [None]
  - BALANCE DISORDER [None]
  - HERNIA [None]
  - MOBILITY DECREASED [None]
  - NAIL INFECTION [None]
